FAERS Safety Report 9149035 (Version 1)
Quarter: 2013Q1

REPORT INFORMATION
  Report Type: Spontaneous
  Country: BR (occurrence: BR)
  Receive Date: 20130308
  Receipt Date: 20130308
  Transmission Date: 20140127
  Serious: Yes (Other)
  Sender: FDA-Public Use
  Company Number: BR-JNJFOC-20130301723

PATIENT
  Age: 30 Year
  Sex: Female
  Weight: 55 kg

DRUGS (2)
  1. EVRA [Suspect]
     Indication: CONTRACEPTION
     Route: 062
     Dates: start: 2009, end: 20130125
  2. UNKNOWN MEDICATION [Suspect]
     Indication: BACK PAIN
     Route: 065

REACTIONS (7)
  - Pregnancy with contraceptive patch [Not Recovered/Not Resolved]
  - Abortion [Recovered/Resolved]
  - Head injury [Unknown]
  - Premature separation of placenta [Recovered/Resolved]
  - Exposure during pregnancy [Not Recovered/Not Resolved]
  - Back pain [Unknown]
  - Withdrawal bleed [Unknown]
